FAERS Safety Report 11447391 (Version 1)
Quarter: 2015Q3

REPORT INFORMATION
  Report Type: Spontaneous
  Country: US (occurrence: US)
  Receive Date: 20150902
  Receipt Date: 20150902
  Transmission Date: 20151125
  Serious: No
  Sender: FDA-Public Use
  Company Number: US-JNJFOC-20150722909

PATIENT
  Sex: Female

DRUGS (11)
  1. CONCERTA [Suspect]
     Active Substance: METHYLPHENIDATE HYDROCHLORIDE
     Indication: ATTENTION DEFICIT/HYPERACTIVITY DISORDER
     Dosage: 56 MG ONCE DAILY
     Route: 048
  2. CONCERTA [Suspect]
     Active Substance: METHYLPHENIDATE HYDROCHLORIDE
     Indication: ATTENTION DEFICIT/HYPERACTIVITY DISORDER
     Dosage: 215MG IN THE MORNING AND 162MG IN THE EVENING
     Route: 048
  3. CABERGOLINE. [Concomitant]
     Active Substance: CABERGOLINE
     Indication: MENTAL DISORDER
     Route: 048
  4. TRAZODONE [Concomitant]
     Active Substance: TRAZODONE HYDROCHLORIDE
     Indication: MENTAL DISORDER
     Route: 048
     Dates: start: 20140117
  5. ALBUTEROL SULFATE. [Concomitant]
     Active Substance: ALBUTEROL SULFATE
     Indication: ASTHMA
     Dosage: 90 MCG EVERY 6 HOURS
     Route: 055
     Dates: start: 20140708
  6. BENZTROPINE [Concomitant]
     Active Substance: BENZTROPINE
     Indication: MENTAL DISORDER
     Route: 048
     Dates: start: 20140414
  7. INVEGA [Concomitant]
     Active Substance: PALIPERIDONE
     Indication: MENTAL DISORDER
     Route: 048
     Dates: start: 20131009
  8. FANAPT [Concomitant]
     Active Substance: ILOPERIDONE
     Indication: MENTAL DISORDER
     Route: 050
  9. CHANTIX [Concomitant]
     Active Substance: VARENICLINE TARTRATE
     Indication: EX-TOBACCO USER
     Route: 048
     Dates: start: 20150324, end: 2015
  10. TOPAMAX [Concomitant]
     Active Substance: TOPIRAMATE
     Indication: MENTAL DISORDER
     Route: 048
  11. FLONASE [Concomitant]
     Active Substance: FLUTICASONE PROPIONATE
     Indication: MULTIPLE ALLERGIES
     Route: 045
     Dates: start: 20140117

REACTIONS (1)
  - Metabolic disorder [Not Recovered/Not Resolved]
